FAERS Safety Report 17065547 (Version 1)
Quarter: 2019Q4

REPORT INFORMATION
  Report Type: Spontaneous
  Country: US (occurrence: US)
  Receive Date: 20191024
  Receipt Date: 20191024
  Transmission Date: 20200122
  Serious: No
  Sender: FDA-Public Use
  Company Number: None

PATIENT
  Age: 26 Year
  Sex: Female

DRUGS (2)
  1. SIROLIMUS TAB 2MG [Suspect]
     Active Substance: SIROLIMUS
     Indication: ENCEPHALITIS
     Route: 048
     Dates: start: 201907
  2. SIROLIMUS TAB 2MG [Suspect]
     Active Substance: SIROLIMUS
     Indication: ENCEPHALOMYELITIS

REACTIONS (1)
  - Off label use [None]

NARRATIVE: CASE EVENT DATE: 20191024
